FAERS Safety Report 10224191 (Version 1)
Quarter: 2014Q2

REPORT INFORMATION
  Report Type: Spontaneous
  Country: US (occurrence: None)
  Receive Date: 20140605
  Receipt Date: 20140605
  Transmission Date: 20141212
  Serious: Yes (Death)
  Sender: FDA-Public Use
  Company Number: TPU2014-00128

PATIENT
  Sex: Female

DRUGS (1)
  1. LIDODERM [Suspect]
     Indication: BACK PAIN
     Route: 061

REACTIONS (1)
  - Death [None]
